FAERS Safety Report 5266190-6 (Version None)
Quarter: 2007Q1

REPORT INFORMATION
  Report Type: 
  Country: None (occurrence: None)
  Receive Date: 20070315
  Receipt Date: 20070302
  Transmission Date: 20070707
  Serious: Yes (Hospitalization)
  Sender: FDA-Public Use
  Company Number: PHBS2007JP04073

PATIENT
  Age: 56 Year
  Sex: Female

DRUGS (11)
  1. LIORESAL [Suspect]
     Indication: NEURALGIA
     Dosage: 10 MG/DAY
     Route: 048
     Dates: start: 20070202
  2. RENAGEL [Concomitant]
     Dosage: 2250 MG/DAY
     Route: 048
     Dates: start: 20070202
  3. CALCIUM CARBONATE [Concomitant]
     Dosage: 4 G/DAY
     Route: 048
     Dates: start: 20070202
  4. SORBITOL [Concomitant]
     Dosage: 10 MG/DAY
     Route: 048
     Dates: start: 20070202
  5. ALOSENN [Concomitant]
     Dosage: 0.5 G/DAY
     Route: 048
     Dates: start: 20070202
  6. MERISLON [Concomitant]
     Dosage: 3 DF/DAY
     Route: 048
     Dates: start: 20070202
  7. CEPHADOL [Concomitant]
     Dosage: 200 MG/DAY
     Route: 048
     Dates: start: 20070202
  8. BISOLVON [Concomitant]
     Dosage: 3 DF/DAY
     Route: 048
     Dates: start: 20070202
  9. PRORENAL [Concomitant]
     Dosage: 3 DF/DAY
     Route: 048
     Dates: start: 20070202
  10. MICARDIS [Concomitant]
     Dosage: 20 MG/DAY
     Route: 048
     Dates: start: 20070202
  11. NEUROTROPIN [Concomitant]
     Dosage: 4 DF/DAY
     Route: 048
     Dates: start: 20070202

REACTIONS (1)
  - DEPRESSED LEVEL OF CONSCIOUSNESS [None]
